FAERS Safety Report 4923818-5 (Version None)
Quarter: 2006Q1

REPORT INFORMATION
  Report Type: 
  Country: None (occurrence: None)
  Receive Date: 20060227
  Receipt Date: 20060217
  Transmission Date: 20060701
  Serious: Yes (Other)
  Sender: FDA-Public Use
  Company Number: DE-JNJFOC-20060100017

PATIENT
  Sex: Male
  Weight: 50 kg

DRUGS (1)
  1. RISPERDAL [Suspect]
     Route: 048
     Dates: start: 20051015

REACTIONS (1)
  - EOSINOPHILIA [None]
